FAERS Safety Report 10264674 (Version 2)
Quarter: 2014Q3

REPORT INFORMATION
  Report Type: Spontaneous
  Country: US (occurrence: US)
  Receive Date: 20140627
  Receipt Date: 20140713
  Transmission Date: 20150326
  Serious: Yes (Death, Hospitalization)
  Sender: FDA-Public Use
  Company Number: US-AMGEN INC.-USASP2014047454

PATIENT
  Age: 67 Year
  Sex: Female

DRUGS (1)
  1. PROLIA [Suspect]
     Active Substance: DENOSUMAB
     Indication: OSTEOPOROSIS
     Dosage: 60 MG, ONLY ONCE
     Route: 058
     Dates: start: 20130730

REACTIONS (4)
  - Hypernatraemia [Fatal]
  - Bipolar disorder [Unknown]
  - Encephalopathy [Fatal]
  - Hypercalcaemia [Fatal]
